FAERS Safety Report 20224284 (Version 3)
Quarter: 2022Q1

REPORT INFORMATION
  Report Type: Report from Study
  Country: GB (occurrence: GB)
  Receive Date: 20211223
  Receipt Date: 20220112
  Transmission Date: 20220424
  Serious: Yes (Death)
  Sender: FDA-Public Use
  Company Number: GB-PFIZER INC-202101823061

PATIENT
  Age: 59 Year
  Sex: Female
  Weight: 48.6 kg

DRUGS (7)
  1. XALKORI [Suspect]
     Active Substance: CRIZOTINIB
     Dosage: 250 MG, CYCLIC
     Route: 048
     Dates: start: 20211012, end: 20211217
  2. ACETAMINOPHEN [Concomitant]
     Active Substance: ACETAMINOPHEN
     Indication: Back pain
     Dosage: 1 G, AS NEEDED
     Route: 048
     Dates: start: 20210901, end: 20211218
  3. LANSOPRAZOLE [Concomitant]
     Active Substance: LANSOPRAZOLE
     Indication: Dyspepsia
     Dosage: 15 MG, 1X/DAY
     Route: 048
     Dates: start: 20211031, end: 20211218
  4. METOCLOPRAMIDE [Concomitant]
     Active Substance: METOCLOPRAMIDE
     Indication: Nausea
     Dosage: 10 MG, AS NEEDED
     Route: 048
     Dates: start: 20210908, end: 20211218
  5. CHOLECALCIFEROL [Concomitant]
     Active Substance: CHOLECALCIFEROL
     Indication: Metastases to bone
     Dosage: 40000, ONCE A WEEK
     Route: 048
     Dates: start: 20210907, end: 20211214
  6. IBUPROFEN [Concomitant]
     Active Substance: IBUPROFEN
     Indication: Back pain
     Dosage: 200 MG, AS NEEDED
     Route: 048
     Dates: start: 20211004, end: 20211218
  7. FERROUS SULFATE [Concomitant]
     Active Substance: FERROUS SULFATE
     Indication: Haemoglobin decreased
     Dosage: 200 MG, 1X/DAY
     Route: 048
     Dates: start: 20211030, end: 20211218

REACTIONS (2)
  - Lower respiratory tract infection [Fatal]
  - Dyspnoea [Unknown]

NARRATIVE: CASE EVENT DATE: 20211218
